FAERS Safety Report 4289384-5 (Version None)
Quarter: 2004Q1

REPORT INFORMATION
  Report Type: 
  Country: None (occurrence: None)
  Receive Date: 20040206
  Receipt Date: 20040203
  Transmission Date: 20041129
  Serious: Yes (Hospitalization)
  Sender: FDA-Public Use
  Company Number: 002#4#2004-00030

PATIENT
  Age: 65 Year
  Sex: Male
  Weight: 99.7913 kg

DRUGS (9)
  1. CHLORPHENIRAMINE MALEATE AND PHENYLPROPANOLAMINE HCL [Suspect]
     Indication: NASOPHARYNGITIS
     Dosage: ORAL
     Route: 048
  2. 666-COLD [Suspect]
     Indication: NASOPHARYNGITIS
     Dosage: ORAL
     Route: 048
  3. ISOSORBIDE MONONITRATE [Concomitant]
  4. NITROGLYCERIN [Concomitant]
  5. SIMVASTATIN [Concomitant]
  6. GLYBURIDE [Concomitant]
  7. FUROSEMIDE [Concomitant]
  8. AMLODIPINE [Concomitant]
  9. HYDROXYZINE [Concomitant]

REACTIONS (2)
  - CEREBROVASCULAR ACCIDENT [None]
  - INJURY [None]
